FAERS Safety Report 5518335-8 (Version None)
Quarter: 2007Q4

REPORT INFORMATION
  Report Type: 
  Country: None (occurrence: None)
  Receive Date: 20071115
  Receipt Date: 20071106
  Transmission Date: 20080405
  Serious: Yes (Death, Life-Threatening, Hospitalization)
  Sender: FDA-Public Use
  Company Number: DE-ROCHE-468352

PATIENT
  Age: 47 Year
  Sex: Female

DRUGS (3)
  1. MYCOPHENOLATE MOFETIL [Suspect]
     Dosage: FREQUENCY UNKNOWN.
     Route: 048
     Dates: start: 20061008, end: 20061030
  2. FK506 [Suspect]
     Route: 048
     Dates: start: 20061008, end: 20061023
  3. HYDROCORTISON [Concomitant]

REACTIONS (10)
  - ABDOMINAL ABSCESS [None]
  - BLOOD BILIRUBIN INCREASED [None]
  - LARGE INTESTINE PERFORATION [None]
  - MULTI-ORGAN FAILURE [None]
  - PERITONITIS [None]
  - RENAL FAILURE ACUTE [None]
  - SEPSIS [None]
  - SHOCK HAEMORRHAGIC [None]
  - SUPRAVENTRICULAR TACHYCARDIA [None]
  - THROMBOCYTOPENIA [None]
